FAERS Safety Report 8296424-5 (Version None)
Quarter: 2012Q2

REPORT INFORMATION
  Report Type: 
  Country: None (occurrence: None)
  Receive Date: 20120418
  Receipt Date: 20120412
  Transmission Date: 20120825
  Serious: Yes (Hospitalization)
  Sender: FDA-Public Use
  Company Number: TR-PFIZER INC-2012092535

PATIENT
  Age: 17 Year
  Sex: Male

DRUGS (1)
  1. CLINDAMYCIN HCL [Suspect]
     Indication: ACUTE TONSILLITIS
     Route: 048

REACTIONS (3)
  - KOUNIS SYNDROME [None]
  - ACUTE MYOCARDIAL INFARCTION [None]
  - MYOCARDIAL BRIDGING [None]
